FAERS Safety Report 21199512 (Version 2)
Quarter: 2022Q3

REPORT INFORMATION
  Report Type: Spontaneous
  Country: JP (occurrence: JP)
  Receive Date: 20220811
  Receipt Date: 20220817
  Transmission Date: 20221026
  Serious: Yes (Other)
  Sender: FDA-Public Use
  Company Number: JP-TEVA-2022-JP-003073J

PATIENT
  Sex: Female

DRUGS (1)
  1. ACARBOSE [Suspect]
     Active Substance: ACARBOSE
     Indication: Product used for unknown indication
     Route: 048

REACTIONS (1)
  - Hypoglycaemia [Unknown]
